FAERS Safety Report 6538596-6 (Version None)
Quarter: 2010Q1

REPORT INFORMATION
  Report Type: 
  Country: None (occurrence: None)
  Receive Date: 20100113
  Receipt Date: 20100113
  Transmission Date: 20100710
  Serious: Yes (Other)
  Sender: FDA-Public Use
  Company Number: None

PATIENT
  Sex: Female
  Weight: 71.6683 kg

DRUGS (2)
  1. CIPROFLAXACIN [Suspect]
     Indication: DIVERTICULITIS
     Dosage: 500MG BID PO
     Route: 048
     Dates: start: 20091222
  2. METRONIDAZOLE [Suspect]
     Dosage: 250 MG TID PO
     Route: 048
     Dates: start: 20091222, end: 20091229

REACTIONS (2)
  - PRURITUS [None]
  - TENDON RUPTURE [None]
